FAERS Safety Report 20357691 (Version 1)
Quarter: 2022Q1

REPORT INFORMATION
  Report Type: Spontaneous
  Country: AU (occurrence: AU)
  Receive Date: 20220120
  Receipt Date: 20220120
  Transmission Date: 20220423
  Serious: Yes (Other)
  Sender: FDA-Public Use
  Company Number: AU-009507513-2101AUS012490

PATIENT
  Age: 53 Year
  Sex: Male

DRUGS (2)
  1. TEMOZOLOMIDE [Suspect]
     Active Substance: TEMOZOLOMIDE
     Indication: Glioblastoma multiforme
     Route: 048
  2. SULFAMETHOXAZOLE\TRIMETHOPRIM [Suspect]
     Active Substance: SULFAMETHOXAZOLE\TRIMETHOPRIM
     Indication: Antifungal prophylaxis
     Dosage: 800/160 MG, 3 TIMES WEEKLY (INTERVAL 1 WEEK)

REACTIONS (3)
  - Nephrogenic diabetes insipidus [Unknown]
  - Tubulointerstitial nephritis [Unknown]
  - Product use issue [Unknown]
